FAERS Safety Report 21957591 (Version 1)
Quarter: 2023Q1

REPORT INFORMATION
  Report Type: Spontaneous
  Country: JP (occurrence: JP)
  Receive Date: 20230206
  Receipt Date: 20230206
  Transmission Date: 20230418
  Serious: Yes (Hospitalization, Other)
  Sender: FDA-Public Use
  Company Number: JP-ELI_LILLY_AND_COMPANY-JP202210012713

PATIENT
  Age: 73 Year
  Sex: Female
  Weight: 52 kg

DRUGS (5)
  1. VERZENIO [Suspect]
     Active Substance: ABEMACICLIB
     Indication: Breast cancer recurrent
     Dosage: 100 MG, BID
     Route: 048
     Dates: start: 20210520, end: 20220727
  2. LETROZOLE [Concomitant]
     Active Substance: LETROZOLE
     Indication: Breast cancer recurrent
     Dosage: 2.5 MG, DAILY
     Route: 048
     Dates: start: 20210520, end: 20220803
  3. LOPERAMIDE [Concomitant]
     Active Substance: LOPERAMIDE
     Indication: Prophylaxis against diarrhoea
     Dosage: 1 MG, PRN
     Route: 048
     Dates: start: 20210520
  4. DEXTROMETHORPHAN [Concomitant]
     Active Substance: DEXTROMETHORPHAN
     Indication: Cough
     Dosage: 15 MG, BID
     Route: 048
     Dates: start: 20201008
  5. ZOLPIDEM TARTRATE [Concomitant]
     Active Substance: ZOLPIDEM TARTRATE
     Indication: Insomnia
     Dosage: 5 MG, DAILY
     Route: 048
     Dates: start: 20151027

REACTIONS (3)
  - Pneumothorax [Recovered/Resolved]
  - Interstitial lung disease [Recovered/Resolved]
  - Malignant neoplasm progression [Unknown]

NARRATIVE: CASE EVENT DATE: 20220728
